FAERS Safety Report 20642346 (Version 1)
Quarter: 2022Q1

REPORT INFORMATION
  Report Type: Spontaneous
  Country: US (occurrence: US)
  Receive Date: 20220328
  Receipt Date: 20220328
  Transmission Date: 20220423
  Serious: Yes (Other)
  Sender: FDA-Public Use
  Company Number: US-BIOVITRUM-2022US01515

PATIENT
  Sex: Female
  Weight: 5 kg

DRUGS (13)
  1. SYNAGIS [Suspect]
     Active Substance: PALIVIZUMAB
     Indication: Antiviral prophylaxis
     Route: 030
     Dates: start: 202111
  2. URSODIOL [Concomitant]
     Active Substance: URSODIOL
     Dosage: 100 PERCENT POWDER
  3. CEFDINIR [Concomitant]
     Active Substance: CEFDINIR
     Dosage: 125 MG/5ML SUSP RECON
  4. FAMOTIDINE [Concomitant]
     Active Substance: FAMOTIDINE
     Dosage: 10 MG/ML VIAL
  5. ATROVENT HFA [Concomitant]
     Active Substance: IPRATROPIUM BROMIDE
     Dosage: 17MCG HFA AER AD
  6. SENNA [Concomitant]
     Active Substance: SENNA LEAF\SENNOSIDES\SENNOSIDES A AND B
  7. ONDANSETRON [Concomitant]
     Active Substance: ONDANSETRON
  8. IRON\VITAMINS [Concomitant]
     Active Substance: IRON\VITAMINS
  9. CIPRODEX [Concomitant]
     Active Substance: CIPROFLOXACIN HYDROCHLORIDE\DEXAMETHASONE
  10. EPINEPHRINE [Concomitant]
     Active Substance: EPINEPHRINE
  11. NEXIUM [Concomitant]
     Active Substance: ESOMEPRAZOLE MAGNESIUM
  12. DIPHENHYDRAMINE [Concomitant]
     Active Substance: DIPHENHYDRAMINE
  13. MIRALAX [Concomitant]
     Active Substance: POLYETHYLENE GLYCOL 3350

REACTIONS (1)
  - Nephroblastoma [Unknown]
